FAERS Safety Report 8915007 (Version 2)
Quarter: 2013Q1

REPORT INFORMATION
  Report Type: Report from Study
  Country: US (occurrence: US)
  Receive Date: 20121116
  Receipt Date: 20130102
  Transmission Date: 20140127
  Serious: Yes (Death, Hospitalization, Other)
  Sender: FDA-Public Use
  Company Number: US-BRISTOL-MYERS SQUIBB COMPANY-17108903

PATIENT
  Age: 70 Year
  Sex: Female
  Weight: 112 kg

DRUGS (8)
  1. SPRYCEL [Suspect]
     Indication: ACUTE MYELOID LEUKAEMIA
     Dosage: DAY 8-10 RECEIVED 100MG, TOTAL DOSE 500MG, CYCLE 1, DAY 10
     Route: 048
     Dates: start: 20120716, end: 20120725
  2. CYTARABINE [Suspect]
     Indication: ACUTE MYELOID LEUKAEMIA
     Dosage: LAST DOSE ON 22-JUL-2012, CYCLE 1,DAY 7
     Route: 042
     Dates: start: 20120716
  3. DAUNORUBICIN HCL [Suspect]
     Indication: ACUTE MYELOID LEUKAEMIA
     Dosage: LAST DOSE ON 18-JUL-2012, CYCLE 1,DAY 3?180MG/M2
     Route: 042
     Dates: start: 20120716
  4. TYLENOL [Concomitant]
  5. ASPIRIN [Concomitant]
  6. MOTRIN [Concomitant]
  7. LISINOPRIL + HCTZ [Concomitant]
  8. OMEGA 3 FATTY ACID [Concomitant]

REACTIONS (7)
  - Enterococcal sepsis [Fatal]
  - Hypotension [Unknown]
  - Respiratory failure [Unknown]
  - Renal failure acute [Unknown]
  - Upper gastrointestinal haemorrhage [Unknown]
  - Blood creatine increased [Unknown]
  - Diarrhoea [Unknown]
